FAERS Safety Report 22196300 (Version 1)
Quarter: 2023Q2

REPORT INFORMATION
  Report Type: Spontaneous
  Country: US (occurrence: None)
  Receive Date: 20230410
  Receipt Date: 20230410
  Transmission Date: 20230722
  Serious: Yes (Other)
  Sender: FDA-Public Use
  Company Number: None

PATIENT
  Age: 59 Year
  Sex: Male

DRUGS (10)
  1. AMBRISENTAN [Suspect]
     Active Substance: AMBRISENTAN
     Indication: Pulmonary arterial hypertension
     Dosage: FREQUENCY : DAILY;?
     Route: 048
     Dates: start: 20210902
  2. TADALAFIL [Concomitant]
     Active Substance: TADALAFIL
  3. PRADAXA [Concomitant]
     Active Substance: DABIGATRAN ETEXILATE MESYLATE
  4. FUROSEMIDE [Concomitant]
     Active Substance: FUROSEMIDE
  5. LISINOPRIL [Concomitant]
  6. potassium chlroide [Concomitant]
  7. COLCHICINE [Concomitant]
  8. spirvira respimat [Concomitant]
  9. DIGOXIN [Concomitant]
  10. ALBUTEROL SULFATE [Concomitant]
     Active Substance: ALBUTEROL SULFATE

REACTIONS (1)
  - Therapy change [None]

NARRATIVE: CASE EVENT DATE: 20230323
